FAERS Safety Report 6212980-2 (Version None)
Quarter: 2009Q2

REPORT INFORMATION
  Report Type: 
  Country: None (occurrence: None)
  Receive Date: 20090602
  Receipt Date: 20090602
  Transmission Date: 20091009
  Serious: Yes (Hospitalization)
  Sender: FDA-Public Use
  Company Number: None

PATIENT
  Sex: Female
  Weight: 105 kg

DRUGS (4)
  1. DOXORUBICIN HYDROCHLORIDE [Suspect]
     Dosage: 90 MG
  2. TAXOL [Suspect]
     Dosage: 320 MG
  3. NEULASTA [Suspect]
     Dosage: 6 MG
  4. CISPLATIN [Suspect]
     Dosage: 100 MG

REACTIONS (2)
  - PELVIC VENOUS THROMBOSIS [None]
  - SMALL INTESTINAL OBSTRUCTION [None]
